FAERS Safety Report 5794280-8 (Version None)
Quarter: 2008Q2

REPORT INFORMATION
  Report Type: 
  Country: None (occurrence: None)
  Receive Date: 20080627
  Receipt Date: 20080619
  Transmission Date: 20081010
  Serious: Yes (Hospitalization, Other)
  Sender: FDA-Public Use
  Company Number: FR-ABBOTT-08P-056-0458958-00

PATIENT
  Sex: Female

DRUGS (4)
  1. HUMIRA [Suspect]
     Indication: MUSCULOSKELETAL PAIN
     Route: 058
     Dates: start: 20070110, end: 20070110
  2. SULFASALAZINE [Suspect]
     Indication: MUSCULOSKELETAL PAIN
     Route: 048
     Dates: start: 20070102, end: 20070110
  3. PREDNISONE [Concomitant]
     Indication: DRUG USE FOR UNKNOWN INDICATION
     Dosage: 20 MG DAILY
     Route: 048
     Dates: start: 20060501, end: 20070112
  4. KINERET [Concomitant]
     Indication: JUVENILE ARTHRITIS
     Dates: start: 20071101

REACTIONS (9)
  - ACUTE PULMONARY OEDEMA [None]
  - CHOLESTASIS [None]
  - DERMATITIS EXFOLIATIVE [None]
  - DISSEMINATED INTRAVASCULAR COAGULATION [None]
  - DRUG RASH WITH EOSINOPHILIA AND SYSTEMIC SYMPTOMS [None]
  - HEPATIC ENZYME INCREASED [None]
  - HYPOKALAEMIA [None]
  - HYPONATRAEMIA [None]
  - OXYGEN SATURATION DECREASED [None]
